FAERS Safety Report 18897965 (Version 1)
Quarter: 2021Q1

REPORT INFORMATION
  Report Type: Spontaneous
  Country: US (occurrence: US)
  Receive Date: 20210212
  Receipt Date: 20210212
  Transmission Date: 20210420
  Serious: Yes (Other)
  Sender: FDA-Public Use
  Company Number: None

PATIENT
  Age: 25 Year
  Sex: Female
  Weight: 92.99 kg

DRUGS (2)
  1. BETADINE [Suspect]
     Active Substance: POVIDONE-IODINE
  2. D DRY PREOPERATIVE SKIN PREP TRAY [Suspect]
     Active Substance: DEVICE

REACTIONS (11)
  - Complication of device removal [None]
  - Vaginal discharge [None]
  - Discomfort [None]
  - Vaginal disorder [None]
  - Foreign body in reproductive tract [None]
  - Vulval disorder [None]
  - Vulvovaginal erythema [None]
  - Oedema genital [None]
  - Device issue [None]
  - Vaginal odour [None]
  - Caesarean section [None]

NARRATIVE: CASE EVENT DATE: 20201217
